FAERS Safety Report 17453614 (Version 13)
Quarter: 2022Q4

REPORT INFORMATION
  Report Type: Report from Study
  Country: CA (occurrence: None)
  Receive Date: 20200224
  Receipt Date: 20221109
  Transmission Date: 20230113
  Serious: Yes (Death, Life-Threatening, Hospitalization)
  Sender: FDA-Public Use
  Company Number: CA-EISAI MEDICAL RESEARCH-EC-2020-070610

PATIENT
  Age: 70 Year
  Sex: Female
  Weight: 56.5 kg

DRUGS (15)
  1. LENVATINIB [Suspect]
     Active Substance: LENVATINIB
     Indication: Ovarian cancer
     Dosage: STARTING DOSE AT 20 MILLIGRAM, FLUCTUATED DOSE
     Route: 048
     Dates: start: 20191008, end: 20200218
  2. LENVATINIB [Suspect]
     Active Substance: LENVATINIB
     Route: 048
     Dates: start: 20200219, end: 20200219
  3. PEMBROLIZUMAB [Suspect]
     Active Substance: PEMBROLIZUMAB
     Indication: Ovarian cancer
     Route: 041
     Dates: start: 20191008, end: 20200131
  4. POTASSIUM CHLORIDE [Concomitant]
     Active Substance: POTASSIUM CHLORIDE
     Dates: start: 199601
  5. LEVOTHYROXINE SODIUM [Concomitant]
     Active Substance: LEVOTHYROXINE SODIUM
     Dates: start: 198301
  6. HYDROCHLOROTHIAZIDE [Concomitant]
     Active Substance: HYDROCHLOROTHIAZIDE
     Dates: start: 198901
  7. ATENOLOL [Concomitant]
     Active Substance: ATENOLOL
     Dates: start: 198901
  8. TYLENOL [Concomitant]
     Active Substance: ACETAMINOPHEN
     Dates: start: 20191012
  9. VITAMINS NOS [Concomitant]
     Active Substance: VITAMINS
     Dates: start: 20200201
  10. DIPHENHYDRAME (+) HYDROCORTISONE (+) NYSTATIN [Concomitant]
     Dates: start: 20191119
  11. HYDROCORTISONE ACETATE [Concomitant]
     Active Substance: HYDROCORTISONE ACETATE
     Dates: start: 20191119
  12. PANTOPRAZOLE [Concomitant]
     Active Substance: PANTOPRAZOLE
     Dates: start: 20200130
  13. CETYLPYRIDINIUM CHLORIDE [Concomitant]
     Active Substance: CETYLPYRIDINIUM CHLORIDE
     Dates: start: 201911
  14. TUMS CHEWIES [Concomitant]
     Dates: start: 20191230, end: 20200129
  15. JAMP POTASSIUM CHLORIDE [Concomitant]
     Dates: start: 20200131, end: 20200201

REACTIONS (4)
  - Hypovolaemic shock [Fatal]
  - Vomiting [Not Recovered/Not Resolved]
  - Cardiac arrest [Recovered/Resolved]
  - Acute kidney injury [Not Recovered/Not Resolved]

NARRATIVE: CASE EVENT DATE: 20200218
